FAERS Safety Report 5051292-X (Version None)
Quarter: 2006Q3

REPORT INFORMATION
  Report Type: 
  Country: None (occurrence: None)
  Receive Date: 20060710
  Receipt Date: 20060626
  Transmission Date: 20061208
  Serious: No
  Sender: FDA-Public Use
  Company Number: 2006-144491-NL

PATIENT
  Age: 29 Year
  Sex: Female

DRUGS (2)
  1. NUVARING [Suspect]
     Dosage: DF
  2. ORTHO EVRA [Suspect]
     Dosage: DF

REACTIONS (1)
  - DEEP VEIN THROMBOSIS [None]
